FAERS Safety Report 16706255 (Version 2)
Quarter: 2019Q4

REPORT INFORMATION
  Report Type: Spontaneous
  Country: US (occurrence: US)
  Receive Date: 20190815
  Receipt Date: 20191106
  Transmission Date: 20200122
  Serious: No
  Sender: FDA-Public Use
  Company Number: US-PFIZER INC-2019347998

PATIENT
  Age: 62 Year
  Sex: Male
  Weight: 61.23 kg

DRUGS (6)
  1. VIAGRA [Suspect]
     Active Substance: SILDENAFIL CITRATE
     Indication: ERECTILE DYSFUNCTION
     Dosage: 100 MG, AS NEEDED
     Route: 048
     Dates: start: 2018
  2. DIAZEPAM. [Concomitant]
     Active Substance: DIAZEPAM
     Indication: DEPRESSION
     Dosage: 10 MG, UNK
  3. DIAZEPAM. [Concomitant]
     Active Substance: DIAZEPAM
     Indication: ANXIETY
  4. OXYCODONE [Concomitant]
     Active Substance: OXYCODONE
     Indication: BACK INJURY
     Dosage: 30 MG, UNK (30 MG, FIVE TIMES A DAY)
  5. OXYCODONE [Concomitant]
     Active Substance: OXYCODONE
     Indication: SPINAL CORD INJURY
  6. MORPHINE SULFATE. [Concomitant]
     Active Substance: MORPHINE SULFATE
     Dosage: UNK, 1X/DAY (NIGHT TIME)

REACTIONS (1)
  - Weight decreased [Unknown]
